FAERS Safety Report 19191977 (Version 1)
Quarter: 2021Q2

REPORT INFORMATION
  Report Type: Spontaneous
  Country: NL (occurrence: HU)
  Receive Date: 20210428
  Receipt Date: 20210428
  Transmission Date: 20210717
  Serious: Yes (Hospitalization)
  Sender: FDA-Public Use
  Company Number: HU-FRESENIUS KABI-FK202104194

PATIENT
  Sex: Female

DRUGS (1)
  1. PARACETAMOL (MANUFACTURER UNKNOWN) [Suspect]
     Active Substance: ACETAMINOPHEN
     Indication: PAIN
     Dosage: 1000 MG, TID
     Route: 065

REACTIONS (7)
  - Dyspnoea [Unknown]
  - Insomnia [Unknown]
  - Drug ineffective [Unknown]
  - Blood pressure increased [Unknown]
  - Chest pain [Unknown]
  - Fatigue [Unknown]
  - Endometriosis [Unknown]
